FAERS Safety Report 14305091 (Version 1)
Quarter: 2017Q4

REPORT INFORMATION
  Report Type: Spontaneous
  Country: JP (occurrence: JP)
  Receive Date: 20171219
  Receipt Date: 20171219
  Transmission Date: 20180321
  Serious: Yes (Other)
  Sender: FDA-Public Use
  Company Number: JP-OTSUKA-010912

PATIENT
  Age: 29 Year
  Sex: Male
  Weight: 83 kg

DRUGS (9)
  1. ABILIFY [Concomitant]
     Active Substance: ARIPIPRAZOLE
     Indication: SCHIZOPHRENIA
     Dosage: 3 MG, SINGLE
     Route: 048
     Dates: start: 20081122, end: 20100817
  2. LULLAN [Concomitant]
     Active Substance: PEROSPIRONE HYDROCHLORIDE
     Indication: SCHIZOPHRENIA
     Dosage: 4 MG, BID
     Route: 048
     Dates: start: 20080623
  3. LUVOX [Concomitant]
     Active Substance: FLUVOXAMINE MALEATE
     Indication: DEPRESSION
     Dosage: 25 MG, QD
     Route: 048
     Dates: start: 20080426, end: 20100831
  4. DEPAS [Concomitant]
     Active Substance: ETIZOLAM
     Indication: ANXIETY
     Dosage: 0.5 MG, QD
     Route: 048
     Dates: start: 20090722
  5. LEXOTAN [Concomitant]
     Active Substance: BROMAZEPAM
     Indication: ANXIETY
     Dosage: 2 MG, QD
     Route: 048
     Dates: start: 20080707
  6. FLUVOXAMINE [Concomitant]
     Active Substance: FLUVOXAMINE
     Dosage: LUVOX TAB
     Dates: start: 20080426, end: 20100831
  7. ABILIFY [Suspect]
     Active Substance: ARIPIPRAZOLE
     Indication: SCHIZOPHRENIA
  8. LENDORMIN [Concomitant]
     Active Substance: BROTIZOLAM
     Indication: INITIAL INSOMNIA
     Dosage: 0.25 MG, QD
     Route: 048
     Dates: start: 20080901
  9. ABILIFY [Suspect]
     Active Substance: ARIPIPRAZOLE
     Indication: RESTLESSNESS
     Dosage: 3 MG, TID, PRN
     Route: 048
     Dates: start: 20100511, end: 20100831

REACTIONS (1)
  - Hepatic function abnormal [Recovered/Resolved]

NARRATIVE: CASE EVENT DATE: 20100721
